FAERS Safety Report 6651398-5 (Version None)
Quarter: 2010Q1

REPORT INFORMATION
  Report Type: 
  Country: None (occurrence: None)
  Receive Date: 20100325
  Receipt Date: 20100313
  Transmission Date: 20100710
  Serious: Yes (Other)
  Sender: FDA-Public Use
  Company Number: US-JNJFOC-20090504789

PATIENT
  Sex: Female
  Weight: 88.91 kg

DRUGS (4)
  1. LEVAQUIN [Suspect]
     Indication: UPPER RESPIRATORY TRACT INFECTION
     Route: 048
  2. LYRICA [Concomitant]
     Indication: FIBROMYALGIA
     Route: 048
  3. CELEBREX [Concomitant]
     Indication: FIBROMYALGIA
     Route: 048
  4. ULTRAM [Concomitant]
     Indication: FIBROMYALGIA
     Route: 048

REACTIONS (5)
  - ARTHROPATHY [None]
  - CONTUSION [None]
  - FALL [None]
  - HAEMORRHAGE [None]
  - TENDON RUPTURE [None]
